FAERS Safety Report 15560169 (Version 1)
Quarter: 2018Q4

REPORT INFORMATION
  Report Type: Spontaneous
  Country: US (occurrence: US)
  Receive Date: 20181022
  Receipt Date: 20181022
  Transmission Date: 20190205
  Serious: Yes (Hospitalization)
  Sender: FDA-Public Use
  Company Number: None

PATIENT
  Age: 82 Year
  Sex: Male

DRUGS (1)
  1. CAPECITABINE 500 MG WESTWARD [Suspect]
     Active Substance: CAPECITABINE
     Indication: NEOPLASM MALIGNANT
     Dosage: FREQUENCY: TWICE A DAY FOR 14 DAYS ON 7 DAYS OFF
     Route: 048
     Dates: start: 20180829

REACTIONS (5)
  - Malaise [None]
  - Electrolyte imbalance [None]
  - Sepsis [None]
  - Haemorrhage [None]
  - Diarrhoea [None]

NARRATIVE: CASE EVENT DATE: 20180919
